FAERS Safety Report 5940559-6 (Version None)
Quarter: 2008Q4

REPORT INFORMATION
  Report Type: 
  Country: None (occurrence: None)
  Receive Date: 20081031
  Receipt Date: 20081022
  Transmission Date: 20090506
  Serious: Yes (Hospitalization, Other)
  Sender: FDA-Public Use
  Company Number: 2008-03312

PATIENT
  Age: 58 Year
  Sex: Male
  Weight: 55 kg

DRUGS (2)
  1. VELCADE [Suspect]
     Indication: MULTIPLE MYELOMA
     Dosage: 1.3 MG/M2, INTRAVENOUS
     Route: 042
     Dates: start: 20080616, end: 20080626
  2. DEXAMETHASONE TAB [Concomitant]

REACTIONS (1)
  - WERNICKE'S ENCEPHALOPATHY [None]
